FAERS Safety Report 21967394 (Version 1)
Quarter: 2023Q1

REPORT INFORMATION
  Report Type: Spontaneous
  Country: US (occurrence: None)
  Receive Date: 20230206
  Receipt Date: 20230206
  Transmission Date: 20230418
  Serious: No
  Sender: FDA-Public Use
  Company Number: None

PATIENT
  Age: 63 Year
  Sex: Female
  Weight: 55.35 kg

DRUGS (4)
  1. REFRESH TEARS [Suspect]
     Active Substance: CARBOXYMETHYLCELLULOSE SODIUM
     Indication: Dry eye
  2. REFRESH OPTIVE GEL DROPS [Suspect]
     Active Substance: CARBOXYMETHYLCELLULOSE SODIUM\GLYCERIN
  3. PROTONIX [Concomitant]
     Active Substance: PANTOPRAZOLE SODIUM
  4. PEPCID [Concomitant]
     Active Substance: FAMOTIDINE

REACTIONS (7)
  - Eye infection [None]
  - Insomnia [None]
  - Sinusitis [None]
  - Documented hypersensitivity to administered product [None]
  - Drug ineffective [None]
  - Dermatitis contact [None]
  - Reading disorder [None]

NARRATIVE: CASE EVENT DATE: 20220101
